FAERS Safety Report 16910691 (Version 1)
Quarter: 2019Q4

REPORT INFORMATION
  Report Type: Spontaneous
  Country: CN (occurrence: CN)
  Receive Date: 20191012
  Receipt Date: 20191012
  Transmission Date: 20200122
  Serious: Yes (Death, Other)
  Sender: FDA-Public Use
  Company Number: CN-AMGEN-CHNSP2019168421

PATIENT

DRUGS (2)
  1. XGEVA [Suspect]
     Active Substance: DENOSUMAB
     Indication: BONE GIANT CELL TUMOUR MALIGNANT
     Dosage: 120 MILLIGRAM
     Route: 058
  2. CALCIUM [Concomitant]
     Active Substance: CALCIUM
     Dosage: 800 MILLIGRAM, QD
     Route: 048

REACTIONS (3)
  - Drug ineffective [Unknown]
  - Metastases to lung [Unknown]
  - Multiple organ dysfunction syndrome [Fatal]
